FAERS Safety Report 15859058 (Version 1)
Quarter: 2019Q1

REPORT INFORMATION
  Report Type: Spontaneous
  Country: US (occurrence: US)
  Receive Date: 20190123
  Receipt Date: 20190123
  Transmission Date: 20190417
  Serious: Yes (Disabling, Other)
  Sender: FDA-Public Use
  Company Number: None

PATIENT
  Age: 43 Year
  Sex: Female

DRUGS (1)
  1. CLONAZAPAM [Suspect]
     Active Substance: CLONAZEPAM

REACTIONS (6)
  - Suicidal behaviour [None]
  - Depression [None]
  - Withdrawal syndrome [None]
  - Anxiety [None]
  - Seizure [None]
  - Hypoglycaemia [None]

NARRATIVE: CASE EVENT DATE: 20110614
